FAERS Safety Report 18144813 (Version 1)
Quarter: 2020Q3

REPORT INFORMATION
  Report Type: Spontaneous
  Country: US (occurrence: US)
  Receive Date: 20200813
  Receipt Date: 20200813
  Transmission Date: 20201103
  Serious: Yes (Other)
  Sender: FDA-Public Use
  Company Number: None

PATIENT
  Age: 77 Year
  Sex: Female
  Weight: 75.3 kg

DRUGS (1)
  1. PROLIA [Suspect]
     Active Substance: DENOSUMAB
     Indication: OSTEOPENIA
     Dosage: ?          OTHER FREQUENCY:ONCE EVERY 6 MONTH;?
     Route: 058
     Dates: start: 20200601

REACTIONS (10)
  - Blood triglycerides increased [None]
  - Paraesthesia [None]
  - Blood glucose increased [None]
  - Myalgia [None]
  - Arthralgia [None]
  - Blood cholesterol increased [None]
  - Low density lipoprotein increased [None]
  - Pain in jaw [None]
  - Pain [None]
  - Skin burning sensation [None]

NARRATIVE: CASE EVENT DATE: 20200601
